FAERS Safety Report 4976509-9 (Version None)
Quarter: 2006Q2

REPORT INFORMATION
  Report Type: 
  Country: None (occurrence: None)
  Receive Date: 20060412
  Receipt Date: 20060403
  Transmission Date: 20061013
  Serious: Yes (Death, Hospitalization)
  Sender: FDA-Public Use
  Company Number: 163-20785-06040124

PATIENT
  Age: 55 Year
  Sex: Female
  Weight: 55.4 kg

DRUGS (13)
  1. THALOMID [Suspect]
     Indication: MULTIPLE MYELOMA
     Dosage: SEE IMAGE
     Route: 048
     Dates: start: 20060125, end: 20060131
  2. THALOMID [Suspect]
     Indication: MULTIPLE MYELOMA
     Dosage: SEE IMAGE
     Route: 048
     Dates: start: 20060201, end: 20060203
  3. DOXORUBICIN (DOXORUBICIN) (INJECTION) [Suspect]
     Indication: MULTIPLE MYELOMA
     Dosage: 40 MG/M2, DAILY, INTRAVENOUS
     Route: 042
     Dates: start: 20060125, end: 20060125
  4. DEXAMETHASONE [Suspect]
     Indication: MULTIPLE MYELOMA
     Dosage: 40 MG, DAILY, ORAL
     Route: 048
     Dates: start: 20060125, end: 20060128
  5. DEXAMETHASONE [Suspect]
     Indication: MULTIPLE MYELOMA
     Dosage: 40 MG, DAILY, ORAL
     Route: 048
     Dates: start: 20060202, end: 20060203
  6. METOPROLOL (METOPROLOL) [Concomitant]
  7. COUMADIN [Concomitant]
  8. ACYCLOVIR [Concomitant]
  9. ASPIRIN [Concomitant]
  10. BACTRIM [Concomitant]
  11. BENZONATATE [Concomitant]
  12. CALCITONIN SALMON [Concomitant]
  13. FUROSEMIDE [Concomitant]

REACTIONS (32)
  - ACUTE MYOCARDIAL INFARCTION [None]
  - ACUTE RESPIRATORY DISTRESS SYNDROME [None]
  - ALANINE AMINOTRANSFERASE INCREASED [None]
  - ASPARTATE AMINOTRANSFERASE INCREASED [None]
  - BLOOD ALKALINE PHOSPHATASE INCREASED [None]
  - BLOOD GLUCOSE INCREASED [None]
  - BLOOD PRESSURE DIASTOLIC DECREASED [None]
  - BRONCHOSCOPY ABNORMAL [None]
  - CANDIDIASIS [None]
  - CATHETER SEPSIS [None]
  - ELECTROCARDIOGRAM ST SEGMENT DEPRESSION [None]
  - HAEMATOCRIT DECREASED [None]
  - HAEMODIALYSIS [None]
  - HAEMOGLOBIN DECREASED [None]
  - HEPARIN-INDUCED THROMBOCYTOPENIA [None]
  - HYPERCALCAEMIA [None]
  - LIPASE INCREASED [None]
  - LUNG DISORDER [None]
  - MICROCOCCUS INFECTION [None]
  - MYOCARDIAL INFARCTION [None]
  - MYOCARDIAL ISCHAEMIA [None]
  - NAUSEA [None]
  - NEISSERIA INFECTION [None]
  - PAIN [None]
  - PHARYNGOLARYNGEAL PAIN [None]
  - PULMONARY OEDEMA [None]
  - RENAL FAILURE CHRONIC [None]
  - SINUS BRADYCARDIA [None]
  - STAPHYLOCOCCAL INFECTION [None]
  - STREPTOCOCCAL INFECTION [None]
  - THROMBOSIS [None]
  - VOMITING [None]
